FAERS Safety Report 25793660 (Version 2)
Quarter: 2025Q3

REPORT INFORMATION
  Report Type: Spontaneous
  Country: US (occurrence: US)
  Receive Date: 20250912
  Receipt Date: 20250922
  Transmission Date: 20251020
  Serious: No
  Sender: CIPLA
  Company Number: US-CIPLA LTD.-2025US11142

PATIENT

DRUGS (3)
  1. ALBUTEROL [Suspect]
     Active Substance: ALBUTEROL
     Indication: Asthma
     Dosage: 180 MICROGRAM, BID (ONE IN THE MORNING AND ONE IN AFTERNOON)-SINCE APR-202
     Dates: start: 202504
  2. ALBUTEROL [Suspect]
     Active Substance: ALBUTEROL
     Dosage: 180 MICROGRAM, BID (ONE IN THE MORNING AND ONE IN AFTERNOON)
     Dates: start: 202508
  3. ALBUTEROL [Suspect]
     Active Substance: ALBUTEROL
     Dates: start: 2025

REACTIONS (2)
  - Drug dose omission by device [Unknown]
  - Device delivery system issue [Unknown]

NARRATIVE: CASE EVENT DATE: 20250830
